FAERS Safety Report 4486544-5 (Version None)
Quarter: 2004Q4

REPORT INFORMATION
  Report Type: 
  Country: None (occurrence: None)
  Receive Date: 20041021
  Receipt Date: 20041012
  Transmission Date: 20050328
  Serious: Yes (Hospitalization)
  Sender: FDA-Public Use
  Company Number: STA-AE-04-MTX-482

PATIENT
  Age: 45 Year
  Sex: Male

DRUGS (17)
  1. RHEUMATREX [Suspect]
     Indication: RHEUMATOID ARTHRITIS
     Dosage: 6 MG 1X PER 1 WK, ORAL
     Route: 048
     Dates: start: 20030508, end: 20040804
  2. RHEUMATREX [Suspect]
     Indication: RHEUMATOID ARTHRITIS
     Dosage: 8 MG 1X PER 1 WK, ORAL
     Route: 048
     Dates: start: 20040805
  3. REMICADE [Suspect]
     Indication: RHEUMATOID ARTHRITIS
     Dosage: 3 MG/KG 1X PER 1 DAY, INTRAVENOUS
     Route: 042
     Dates: start: 20040224, end: 20040224
  4. REMICADE [Suspect]
     Indication: RHEUMATOID ARTHRITIS
     Dosage: 3 MG/KG 1X PER 1 DAY, INTRAVENOUS
     Route: 042
     Dates: start: 20040309, end: 20040309
  5. REMICADE [Suspect]
     Indication: RHEUMATOID ARTHRITIS
     Dosage: 3 MG/KG 1X PER 1 DAY, INTRAVENOUS
     Route: 042
     Dates: start: 20040406, end: 20040406
  6. VOLTAREN [Concomitant]
  7. SELBEX (TEPRENONE) [Concomitant]
  8. PREDNISOLONE [Concomitant]
  9. ETODOLAC [Concomitant]
  10. LOXONIN (LOXOPROFEN SODIUM) [Concomitant]
  11. FOLIC ACID [Concomitant]
  12. GASTER (FAMOTIDINE) [Concomitant]
  13. ... [Concomitant]
  14. AZULFIDINE [Concomitant]
  15. VENA PASTA (DIPHENHYDRAMINE LAURISULFATE) [Concomitant]
  16. CALONAL (PARACETAMOL) [Concomitant]
  17. ... [Concomitant]

REACTIONS (6)
  - ERYTHEMA [None]
  - HEPATITIS B [None]
  - PLEURAL EFFUSION [None]
  - PULMONARY MASS [None]
  - PYREXIA [None]
  - TUBERCULOSIS [None]
